FAERS Safety Report 14521963 (Version 23)
Quarter: 2021Q4

REPORT INFORMATION
  Report Type: Spontaneous
  Country: US (occurrence: US)
  Receive Date: 20180212
  Receipt Date: 20211027
  Transmission Date: 20220303
  Serious: Yes (Other)
  Sender: FDA-Public Use
  Company Number: US-INCYTE CORPORATION-2018IN000847

PATIENT

DRUGS (26)
  1. JAKAFI [Suspect]
     Active Substance: RUXOLITINIB
     Indication: Polycythaemia vera
     Dosage: 20 MG, BID
     Route: 048
     Dates: start: 2012
  2. JAKAFI [Suspect]
     Active Substance: RUXOLITINIB
     Indication: Myelofibrosis
     Dosage: 20 MG, BID
     Route: 048
     Dates: start: 20140420
  3. JAKAFI [Suspect]
     Active Substance: RUXOLITINIB
     Dosage: 20 MG, BID
     Route: 048
  4. JAKAFI [Suspect]
     Active Substance: RUXOLITINIB
     Dosage: 20 MG, BID
     Route: 048
     Dates: start: 20140429
  5. JAKAFI [Suspect]
     Active Substance: RUXOLITINIB
     Dosage: 20 MILLIGRAM, BID
     Route: 048
  6. JAKAFI [Suspect]
     Active Substance: RUXOLITINIB
     Dosage: 20 MILLIGRAM, BID
     Route: 048
  7. JAKAFI [Suspect]
     Active Substance: RUXOLITINIB
     Dosage: 20 MILLIGRAM, BID
     Route: 048
     Dates: start: 20140429
  8. JAKAFI [Suspect]
     Active Substance: RUXOLITINIB
     Dosage: 20 MILLIGRAM, BID
     Route: 048
  9. JAKAFI [Suspect]
     Active Substance: RUXOLITINIB
     Dosage: 20 MILLIGRAM, BID
     Route: 048
  10. JAKAFI [Suspect]
     Active Substance: RUXOLITINIB
     Dosage: 20 MILLIGRAM, BID
     Route: 048
     Dates: start: 20140429
  11. JAKAFI [Suspect]
     Active Substance: RUXOLITINIB
     Dosage: 20 MILLIGRAM, BID
     Route: 048
  12. AMOXICILLIN [Suspect]
     Active Substance: AMOXICILLIN
     Indication: Bronchitis
     Dosage: UNK
     Route: 065
  13. CYMBALTA [Suspect]
     Active Substance: DULOXETINE HYDROCHLORIDE
     Indication: Neuropathy peripheral
     Dosage: UNK
     Route: 065
  14. CYMBALTA [Suspect]
     Active Substance: DULOXETINE HYDROCHLORIDE
     Indication: Pelvic pain
  15. GEMFIBROZIL [Suspect]
     Active Substance: GEMFIBROZIL
     Indication: Product used for unknown indication
     Route: 065
  16. FLEXERIL [Suspect]
     Active Substance: CYCLOBENZAPRINE HYDROCHLORIDE
     Indication: Muscle spasms
     Dosage: UNK, QOD
     Route: 065
  17. FLEXERIL [Suspect]
     Active Substance: CYCLOBENZAPRINE HYDROCHLORIDE
     Indication: Abdominal distension
  18. ASPIRIN [Concomitant]
     Active Substance: ASPIRIN
     Indication: Product used for unknown indication
     Dosage: 81 MILLIGRAM, QD
     Route: 065
  19. ASPIRIN [Concomitant]
     Active Substance: ASPIRIN
     Dosage: DAILY
     Route: 065
  20. CEPACOL                            /00104701/ [Concomitant]
     Indication: Product used for unknown indication
     Dosage: UNK
     Route: 065
  21. VITAMINS [Concomitant]
     Active Substance: VITAMINS
     Indication: Product used for unknown indication
     Dosage: DAILY
     Route: 065
  22. ATIVAN [Concomitant]
     Active Substance: LORAZEPAM
     Indication: Product used for unknown indication
     Dosage: 0.5 MILLIGRAM, BID
     Route: 065
  23. HYDROCHLOROTHIAZIDE [Concomitant]
     Active Substance: HYDROCHLOROTHIAZIDE
     Indication: Product used for unknown indication
     Route: 065
  24. POTASSIUM [Concomitant]
     Active Substance: POTASSIUM
     Indication: Product used for unknown indication
     Route: 065
  25. MECLIZINE [Concomitant]
     Active Substance: MECLIZINE HYDROCHLORIDE
     Indication: Product used for unknown indication
     Route: 065
  26. ZINC [Concomitant]
     Active Substance: ZINC
     Indication: Product used for unknown indication
     Route: 065

REACTIONS (91)
  - Pneumonia [Not Recovered/Not Resolved]
  - Neuropathy peripheral [Not Recovered/Not Resolved]
  - Hypoxia [Unknown]
  - Squamous cell carcinoma [Recovering/Resolving]
  - Amyloidosis [Unknown]
  - Acute respiratory failure [Unknown]
  - Basal cell carcinoma [Recovering/Resolving]
  - Myelofibrosis [Not Recovered/Not Resolved]
  - Muscle injury [Unknown]
  - Fall [Unknown]
  - Pain in extremity [Unknown]
  - Bronchitis [Unknown]
  - Malaise [Not Recovered/Not Resolved]
  - White blood cell count abnormal [Unknown]
  - Dry skin [Unknown]
  - Photosensitivity reaction [Unknown]
  - Bone pain [Not Recovered/Not Resolved]
  - Hepatomegaly [Not Recovered/Not Resolved]
  - Vision blurred [Not Recovered/Not Resolved]
  - Tachycardia [Not Recovered/Not Resolved]
  - Bone marrow disorder [Not Recovered/Not Resolved]
  - White blood cell count decreased [Unknown]
  - Oropharyngeal pain [Recovered/Resolved]
  - Abdominal discomfort [Recovered/Resolved]
  - Heat stroke [Unknown]
  - Palpitations [Unknown]
  - Heart rate increased [Unknown]
  - Lymphocyte count decreased [Unknown]
  - Monocyte count decreased [Unknown]
  - Eosinophil count decreased [Unknown]
  - High density lipoprotein increased [Unknown]
  - Low density lipoprotein increased [Unknown]
  - Arthropod bite [Not Recovered/Not Resolved]
  - Bacterial infection [Recovered/Resolved]
  - Mass [Unknown]
  - Erythema [Unknown]
  - Lymphadenopathy [Unknown]
  - Dysphonia [Unknown]
  - Sensation of foreign body [Unknown]
  - Blood glucose increased [Not Recovered/Not Resolved]
  - Renal pain [Not Recovered/Not Resolved]
  - Chromaturia [Recovered/Resolved]
  - Glucose urine present [Not Recovered/Not Resolved]
  - Burning sensation [Not Recovered/Not Resolved]
  - Pain [Not Recovered/Not Resolved]
  - Gait disturbance [Recovering/Resolving]
  - Urine ketone body present [Recovering/Resolving]
  - Joint swelling [Recovering/Resolving]
  - Glycosylated haemoglobin [Recovering/Resolving]
  - Swelling face [Unknown]
  - Decreased activity [Unknown]
  - Productive cough [Recovered/Resolved]
  - Respiratory tract congestion [Unknown]
  - Abdominal distension [Not Recovered/Not Resolved]
  - Hypopnoea [Unknown]
  - Blood disorder [Unknown]
  - Muscle tightness [Unknown]
  - Myalgia [Unknown]
  - Increased appetite [Unknown]
  - Wound [Recovering/Resolving]
  - Procedural pain [Recovering/Resolving]
  - Impaired healing [Recovering/Resolving]
  - Stress [Unknown]
  - Feeling abnormal [Unknown]
  - Blast cells present [Not Recovered/Not Resolved]
  - Gastrointestinal motility disorder [Not Recovered/Not Resolved]
  - Somnolence [Unknown]
  - Product dose omission issue [Unknown]
  - Muscle spasms [Not Recovered/Not Resolved]
  - Contusion [Unknown]
  - Cough [Unknown]
  - Full blood count abnormal [Not Recovered/Not Resolved]
  - Splenomegaly [Recovering/Resolving]
  - Fatigue [Not Recovered/Not Resolved]
  - Headache [Not Recovered/Not Resolved]
  - Dizziness [Unknown]
  - Dyspnoea [Not Recovered/Not Resolved]
  - Red blood cell count decreased [Unknown]
  - Blood cholesterol increased [Not Recovered/Not Resolved]
  - Blood triglycerides increased [Not Recovered/Not Resolved]
  - Haemoglobin decreased [Unknown]
  - Haematocrit decreased [Unknown]
  - Neutrophil count decreased [Unknown]
  - Alanine aminotransferase increased [Unknown]
  - Aspartate aminotransferase increased [Unknown]
  - Weight increased [Unknown]
  - Oedema peripheral [Recovering/Resolving]
  - Arthralgia [Recovering/Resolving]
  - Nausea [Unknown]
  - Vertigo [Unknown]
  - Dyspnoea exertional [Unknown]

NARRATIVE: CASE EVENT DATE: 20180101
